FAERS Safety Report 24084993 (Version 1)
Quarter: 2024Q3

REPORT INFORMATION
  Report Type: Spontaneous
  Country: US (occurrence: US)
  Receive Date: 20240712
  Receipt Date: 20240712
  Transmission Date: 20241016
  Serious: No
  Sender: MYLAN
  Company Number: US-MYLANLABS-2024M1061122

PATIENT
  Sex: Female

DRUGS (1)
  1. TYRVAYA [Suspect]
     Active Substance: VARENICLINE TARTRATE
     Indication: Product used for unknown indication
     Dosage: 0.03 MILLIGRAM
     Route: 065
     Dates: start: 2024

REACTIONS (6)
  - Drug ineffective [Unknown]
  - Cough [Unknown]
  - Sneezing [Unknown]
  - Throat irritation [Unknown]
  - Device difficult to use [Unknown]
  - Product delivery mechanism issue [Unknown]
